FAERS Safety Report 10948828 (Version 1)
Quarter: 2015Q1

REPORT INFORMATION
  Report Type: Spontaneous
  Country: US (occurrence: US)
  Receive Date: 20150324
  Receipt Date: 20150324
  Transmission Date: 20150721
  Serious: No
  Sender: FDA-Public Use
  Company Number: US-ASTRAZENECA-2015SE24616

PATIENT
  Age: 77 Year
  Sex: Female
  Weight: 79.4 kg

DRUGS (4)
  1. ESTRADIOL. [Concomitant]
     Active Substance: ESTRADIOL
     Indication: HORMONE REPLACEMENT THERAPY
  2. SYNTHROID [Concomitant]
     Active Substance: LEVOTHYROXINE SODIUM
     Indication: THYROID DYSFUNCTION IN PREGNANCY
     Route: 048
  3. PREMERIN [Concomitant]
     Indication: HORMONE REPLACEMENT THERAPY
  4. ARIMIDEX [Suspect]
     Active Substance: ANASTROZOLE
     Indication: BREAST CANCER
     Route: 048
     Dates: start: 201406

REACTIONS (5)
  - Breast pain [Unknown]
  - Muscle strain [Unknown]
  - Gait disturbance [Unknown]
  - Bone pain [Unknown]
  - Impetigo [Unknown]

NARRATIVE: CASE EVENT DATE: 2014
